FAERS Safety Report 7583142-1 (Version None)
Quarter: 2011Q2

REPORT INFORMATION
  Report Type: 
  Country: None (occurrence: None)
  Receive Date: 20110630
  Receipt Date: 20110623
  Transmission Date: 20111010
  Serious: Yes (Disabling, Other)
  Sender: FDA-Public Use
  Company Number: US-PFIZER INC-2011123457

PATIENT
  Sex: Male
  Weight: 58.957 kg

DRUGS (4)
  1. PROPRANOLOL [Concomitant]
     Indication: BLOOD PRESSURE ABNORMAL
     Dosage: 100 MG, DAILY
     Route: 048
  2. PROPRANOLOL [Concomitant]
     Indication: CARDIAC DISORDER
  3. TOPROL-XL [Concomitant]
     Indication: CARDIAC DISORDER
     Dosage: 100 MG, DAILY
     Route: 048
     Dates: start: 19990101
  4. TOVIAZ [Suspect]
     Indication: BLADDER DISORDER
     Dosage: 4 MG, 1X/DAY
     Route: 048
     Dates: start: 20110506, end: 20110101

REACTIONS (11)
  - SPEECH DISORDER [None]
  - BLADDER DISORDER [None]
  - GENERAL PHYSICAL HEALTH DETERIORATION [None]
  - DYSPHEMIA [None]
  - WEIGHT DECREASED [None]
  - URINE ABNORMALITY [None]
  - DIPLOPIA [None]
  - INJURY [None]
  - DEVICE OCCLUSION [None]
  - AMNESIA [None]
  - MICTURITION URGENCY [None]
